FAERS Safety Report 8246560-4 (Version None)
Quarter: 2012Q1

REPORT INFORMATION
  Report Type: 
  Country: None (occurrence: None)
  Receive Date: 20120330
  Receipt Date: 20120320
  Transmission Date: 20120608
  Serious: Yes (Other)
  Sender: FDA-Public Use
  Company Number: PHEH2012US006308

PATIENT
  Sex: Female

DRUGS (1)
  1. ZOMETA [Suspect]
     Indication: BREAST CANCER METASTATIC

REACTIONS (5)
  - TOOTH LOSS [None]
  - BLINDNESS UNILATERAL [None]
  - PAIN IN JAW [None]
  - JAW FRACTURE [None]
  - JAW DISORDER [None]
